FAERS Safety Report 21484667 (Version 4)
Quarter: 2023Q2

REPORT INFORMATION
  Report Type: Report from Study
  Country: IT (occurrence: None)
  Receive Date: 20221020
  Receipt Date: 20230519
  Transmission Date: 20230722
  Serious: Yes (Hospitalization)
  Sender: FDA-Public Use
  Company Number: IT-ROCHE-2995615

PATIENT
  Age: 80 Year
  Sex: Male
  Weight: 68 kg

DRUGS (5)
  1. BEVACIZUMAB [Suspect]
     Active Substance: BEVACIZUMAB
     Indication: Hepatocellular carcinoma
     Dosage: MOST RECENT DOSE OF BEVACIZUMAB (1020 MG) ON 02/DEC/2021
     Route: 042
     Dates: start: 20210517
  2. ATEZOLIZUMAB [Suspect]
     Active Substance: ATEZOLIZUMAB
     Indication: Hepatocellular carcinoma
     Dosage: MOST RECENT DOSE 1200 MG OF ATEZOLIZUMAB ON 02/DEC/2021
     Route: 065
     Dates: start: 20210517
  3. METRONIDAZOLE [Concomitant]
     Active Substance: METRONIDAZOLE
     Dates: start: 20211230, end: 20220105
  4. ATORVASTATIN [Concomitant]
     Active Substance: ATORVASTATIN
     Dosage: YES
     Dates: start: 20211230
  5. FOLIC ACID [Concomitant]
     Active Substance: FOLIC ACID
     Dosage: YES
     Dates: start: 20211230

REACTIONS (2)
  - Haemoptysis [Recovered/Resolved]
  - Pneumonia [Recovered/Resolved]

NARRATIVE: CASE EVENT DATE: 20211228
